FAERS Safety Report 7716746-3 (Version None)
Quarter: 2011Q3

REPORT INFORMATION
  Report Type: 
  Country: None (occurrence: None)
  Receive Date: 20110829
  Receipt Date: 20110822
  Transmission Date: 20111222
  Serious: Yes (Hospitalization)
  Sender: FDA-Public Use
  Company Number: US-JNJFOC-20110707189

PATIENT
  Sex: Male
  Weight: 103.42 kg

DRUGS (3)
  1. METHOTREXATE [Concomitant]
  2. INFLIXIMAB, RECOMBINANT [Suspect]
     Route: 042
     Dates: start: 20080701
  3. INFLIXIMAB, RECOMBINANT [Suspect]
     Indication: PSORIASIS
     Route: 042
     Dates: start: 20110303, end: 20110501

REACTIONS (1)
  - DIABETIC KETOACIDOSIS [None]
